FAERS Safety Report 4739868-8 (Version None)
Quarter: 2005Q3

REPORT INFORMATION
  Report Type: 
  Country: None (occurrence: None)
  Receive Date: 20050805
  Receipt Date: 20050725
  Transmission Date: 20060218
  Serious: Yes (Other)
  Sender: FDA-Public Use
  Company Number: 2005106213

PATIENT
  Age: 13 Day

DRUGS (1)
  1. ROLAIDS SOFT CHEWS VANILLA CREME (CALCIUM CARBONATE) [Suspect]
     Indication: DRUG EXPOSURE DURING PREGNANCY
     Dosage: 1-1.5 PACKS DAILY, AS
     Dates: start: 20040101, end: 20050711

REACTIONS (2)
  - DRUG EXPOSURE DURING PREGNANCY [None]
  - MEDIUM-CHAIN ACETYL-COENZYME A DEHYDROGENASE DEFICIENCY [None]
